FAERS Safety Report 18459272 (Version 1)
Quarter: 2020Q4

REPORT INFORMATION
  Report Type: Spontaneous
  Country: US (occurrence: US)
  Receive Date: 20201103
  Receipt Date: 20201103
  Transmission Date: 20210114
  Serious: Yes (Other)
  Sender: FDA-Public Use
  Company Number: US-ASTRAZENECA-2020SF43290

PATIENT
  Sex: Female

DRUGS (2)
  1. FARXIGA [Suspect]
     Active Substance: DAPAGLIFLOZIN PROPANEDIOL
     Route: 048
  2. OTHER DIABETES MEDS [Concomitant]
     Route: 048

REACTIONS (3)
  - Drug intolerance [Unknown]
  - Diverticulum [Unknown]
  - Diverticulitis [Not Recovered/Not Resolved]
